FAERS Safety Report 9983063 (Version 1)
Quarter: 2014Q1

REPORT INFORMATION
  Report Type: Report from Study
  Country: US (occurrence: US)
  Receive Date: 20140307
  Receipt Date: 20140307
  Transmission Date: 20141002
  Serious: No
  Sender: FDA-Public Use
  Company Number: US-ABBVIE-13P-163-1176943-00

PATIENT
  Age: 69 Year
  Sex: Female
  Weight: 87.17 kg

DRUGS (13)
  1. HUMIRA [Suspect]
     Indication: RHEUMATOID ARTHRITIS
  2. METHOTREXATE [Concomitant]
     Indication: RHEUMATOID ARTHRITIS
  3. FOLIC ACID [Concomitant]
     Indication: VITAMIN SUPPLEMENTATION
  4. DEPAKOTE [Concomitant]
     Indication: CONVULSION
  5. ATENOLOL [Concomitant]
     Indication: BLOOD PRESSURE
  6. AMLODIPINE [Concomitant]
     Indication: BLOOD PRESSURE
  7. CYMBALTA [Concomitant]
     Indication: DEPRESSION
  8. CALCIUM [Concomitant]
     Indication: MINERAL SUPPLEMENTATION
  9. VITAMIN D [Concomitant]
     Indication: VITAMIN SUPPLEMENTATION
  10. VITAMIN B [Concomitant]
     Indication: VITAMIN SUPPLEMENTATION
  11. SYNTHROID [Concomitant]
     Indication: THYROID FUNCTION TEST ABNORMAL
  12. MULTIPLE VITAMINS [Concomitant]
     Indication: VITAMIN SUPPLEMENTATION
  13. IBUPROFEN [Concomitant]
     Indication: PAIN

REACTIONS (2)
  - Nasopharyngitis [Not Recovered/Not Resolved]
  - Chest discomfort [Not Recovered/Not Resolved]
